FAERS Safety Report 5877246-9 (Version None)
Quarter: 2008Q3

REPORT INFORMATION
  Report Type: 
  Country: None (occurrence: None)
  Receive Date: 20080910
  Receipt Date: 20080902
  Transmission Date: 20090109
  Serious: Yes (Hospitalization)
  Sender: FDA-Public Use
  Company Number: IT-PFIZER INC-2008073889

PATIENT
  Sex: Male

DRUGS (1)
  1. SUTENT [Suspect]
     Indication: RENAL CANCER
     Dates: start: 20080807, end: 20080821

REACTIONS (4)
  - DISORIENTATION [None]
  - HAEMOLYSIS [None]
  - PYREXIA [None]
  - STOMATITIS [None]
